FAERS Safety Report 10059564 (Version 2)
Quarter: 2014Q2

REPORT INFORMATION
  Report Type: Report from Study
  Country: JP (occurrence: JP)
  Receive Date: 20140404
  Receipt Date: 20140428
  Transmission Date: 20141212
  Serious: Yes (Other)
  Sender: FDA-Public Use
  Company Number: JP-SA-2014SA042477

PATIENT
  Age: 83 Year
  Sex: Male

DRUGS (1)
  1. TAXOTERE [Suspect]
     Indication: ANGIOSARCOMA
     Dosage: SCHEDULED 12 COURSES
     Route: 065

REACTIONS (2)
  - Porphyria non-acute [Unknown]
  - Off label use [Unknown]
